FAERS Safety Report 9967326 (Version 2)
Quarter: 2014Q1

REPORT INFORMATION
  Report Type: Report from Study
  Country: US (occurrence: US)
  Receive Date: 20140305
  Receipt Date: 20140305
  Transmission Date: 20141002
  Serious: No
  Sender: FDA-Public Use
  Company Number: US-ABBVIE-13P-163-1087317-00

PATIENT
  Age: 49 Year
  Sex: Female

DRUGS (17)
  1. HUMIRA [Suspect]
     Indication: PSORIASIS
     Route: 058
     Dates: start: 20130427, end: 20130427
  2. HUMIRA [Suspect]
     Route: 058
     Dates: start: 20130504
  3. HUMIRA [Suspect]
  4. CLONIDINE [Concomitant]
     Indication: HYPERTENSION
  5. ISOSORBIDE [Concomitant]
     Indication: HYPERTENSION
     Dosage: 20 MG DAILY
  6. GABAPENTIN [Concomitant]
     Indication: EMOTIONAL DISTRESS
  7. METOPROLOL [Concomitant]
     Indication: HYPERTENSION
     Dosage: 20 MG DAILY
  8. GLIMEPIRIDE [Concomitant]
     Indication: DIABETES MELLITUS
     Dosage: 4 MG DAILY
  9. AMLODIPINE/NOVASC [Concomitant]
     Indication: HYPERTENSION
     Dosage: 10 MG DAILY
  10. POTASSIUM [Concomitant]
     Indication: BLOOD POTASSIUM DECREASED
     Dosage: 10 MG DAILY
  11. FAMOTIDINE [Concomitant]
     Indication: GASTRIC DISORDER
     Dosage: 20 MG DAILY
  12. LASIX [Concomitant]
     Indication: FLUID RETENTION
  13. SPIRONOLACTONE [Concomitant]
     Indication: FLUID RETENTION
     Dosage: 25 MG DAILY
  14. LANTUS [Concomitant]
     Indication: DIABETES MELLITUS
     Dosage: AT BEDTIME
  15. HUMALOG [Concomitant]
     Indication: DIABETES MELLITUS
  16. ALBUTEROL [Concomitant]
     Indication: ASTHMA
     Route: 055
  17. ADVAIR [Concomitant]
     Indication: ASTHMA
     Dosage: 250 MG AS NEEDED
     Route: 055

REACTIONS (6)
  - Dysarthria [Unknown]
  - Pruritus [Not Recovered/Not Resolved]
  - Psoriasis [Not Recovered/Not Resolved]
  - Fatigue [Not Recovered/Not Resolved]
  - Insomnia [Not Recovered/Not Resolved]
  - Drug ineffective [Not Recovered/Not Resolved]
